FAERS Safety Report 7018967-4 (Version None)
Quarter: 2010Q3

REPORT INFORMATION
  Report Type: 
  Country: None (occurrence: None)
  Receive Date: 20100928
  Receipt Date: 20100916
  Transmission Date: 20110219
  Serious: Yes (Disabling)
  Sender: FDA-Public Use
  Company Number: US-WYE-H17582710

PATIENT
  Sex: Female
  Weight: 59.02 kg

DRUGS (5)
  1. EFFEXOR XR [Suspect]
     Indication: ANXIETY
     Route: 048
     Dates: start: 20100701
  2. EFFEXOR XR [Suspect]
     Route: 048
     Dates: start: 20100101, end: 20100101
  3. SIMVASTATIN [Concomitant]
     Dosage: UNKNOWN
  4. CELEXA [Concomitant]
     Route: 048
  5. CELEXA [Concomitant]
     Dates: start: 20100701

REACTIONS (6)
  - BLEPHAROSPASM [None]
  - DRY EYE [None]
  - DYSTONIA [None]
  - EYE PAIN [None]
  - MEIGE'S SYNDROME [None]
  - MUSCLE TIGHTNESS [None]
